FAERS Safety Report 19770668 (Version 1)
Quarter: 2021Q3

REPORT INFORMATION
  Report Type: Spontaneous
  Country: CA (occurrence: CA)
  Receive Date: 20210901
  Receipt Date: 20210901
  Transmission Date: 20211014
  Serious: Yes (Other)
  Sender: FDA-Public Use
  Company Number: CA-TEVA-2021-CA-1947063

PATIENT
  Age: 57 Year
  Sex: Female
  Weight: 91 kg

DRUGS (6)
  1. CASCARA SAGRADA [Interacting]
     Active Substance: FRANGULA PURSHIANA BARK
     Indication: CONSTIPATION
     Dosage: 250 MILLIGRAM DAILY;
     Route: 048
  2. PREMARIN [Concomitant]
     Active Substance: ESTROGENS, CONJUGATED
  3. DOVOBET [Concomitant]
     Active Substance: BETAMETHASONE\CALCIPOTRIENE
  4. SYMBICORT [Concomitant]
     Active Substance: BUDESONIDE\FORMOTEROL FUMARATE DIHYDRATE
     Route: 065
  5. MONTELUKAST /01362602/ [Concomitant]
     Active Substance: MONTELUKAST SODIUM
  6. VENLAFAXINE HYDROCHLORIDE. [Suspect]
     Active Substance: VENLAFAXINE HYDROCHLORIDE
     Indication: GENERALISED ANXIETY DISORDER
     Dosage: 150 MILLIGRAM DAILY;

REACTIONS (9)
  - Contusion [Recovered/Resolved]
  - Disturbance in attention [Recovered/Resolved]
  - Headache [Recovered/Resolved]
  - Wound [Recovered/Resolved]
  - Nervousness [Recovered/Resolved]
  - Clumsiness [Recovered/Resolved]
  - Drug interaction [Recovered/Resolved]
  - Coordination abnormal [Recovered/Resolved]
  - Thinking abnormal [Recovered/Resolved]
